FAERS Safety Report 16992307 (Version 1)
Quarter: 2019Q4

REPORT INFORMATION
  Report Type: Spontaneous
  Country: US (occurrence: US)
  Receive Date: 20190921
  Receipt Date: 20190921
  Transmission Date: 20200122
  Serious: Yes (Hospitalization)
  Sender: FDA-Public Use
  Company Number: None

PATIENT
  Age: 28 Year
  Sex: Female

DRUGS (10)
  1. IBUPROFEN. [Concomitant]
     Active Substance: IBUPROFEN
  2. LITHIUM CARB [Concomitant]
     Active Substance: LITHIUM CARBONATE
  3. DULOXETINE. [Concomitant]
     Active Substance: DULOXETINE
  4. HYDROXYZ [Concomitant]
     Active Substance: HYDROXYZINE HYDROCHLORIDE
  5. OLANZAPINE. [Concomitant]
     Active Substance: OLANZAPINE
  6. CELCOXIB [Concomitant]
     Active Substance: CELECOXIB
  7. HUMIRA [Suspect]
     Active Substance: ADALIMUMAB
  8. OMEPRAZOLE. [Concomitant]
     Active Substance: OMEPRAZOLE
  9. TOPIRAMATE. [Concomitant]
     Active Substance: TOPIRAMATE
  10. OXYCODONE AND ACETAMINOPHEN [Concomitant]
     Active Substance: ACETAMINOPHEN\OXYCODONE HYDROCHLORIDE

REACTIONS (4)
  - Nasopharyngitis [None]
  - Malaise [None]
  - Therapy cessation [None]
  - Endometriosis [None]

NARRATIVE: CASE EVENT DATE: 201909
